FAERS Safety Report 4267638-6 (Version None)
Quarter: 2004Q1

REPORT INFORMATION
  Report Type: 
  Country: None (occurrence: None)
  Receive Date: 20040109
  Receipt Date: 20031104
  Transmission Date: 20041129
  Serious: No
  Sender: FDA-Public Use
  Company Number: US-GLAXOSMITHKLINE-A0433001A

PATIENT
  Sex: Male

DRUGS (2)
  1. WELLBUTRIN [Suspect]
     Indication: ILL-DEFINED DISORDER
     Dosage: 150MG UNKNOWN
     Route: 048
  2. CONCERTA [Suspect]
     Indication: ILL-DEFINED DISORDER
     Dosage: 18MG PER DAY
     Route: 048
     Dates: start: 20030901

REACTIONS (1)
  - HEART RATE INCREASED [None]
